FAERS Safety Report 9626202 (Version 1)
Quarter: 2013Q4

REPORT INFORMATION
  Report Type: Spontaneous
  Country: CO (occurrence: CO)
  Receive Date: 20131016
  Receipt Date: 20131016
  Transmission Date: 20140711
  Serious: Yes (Hospitalization, Other)
  Sender: FDA-Public Use
  Company Number: CO-PFIZER INC-2013296135

PATIENT
  Age: 61 Year
  Sex: Male

DRUGS (10)
  1. LYRICA [Suspect]
     Indication: OSTEOARTHRITIS
     Dosage: 150 MG, 1X/DAY (ONE TABLET)
     Route: 048
     Dates: start: 2008
  2. LYRICA [Suspect]
     Indication: BONE PAIN
     Dosage: 150 MG, 2 TABLETS PER DAY
     Route: 048
  3. LYRICA [Suspect]
     Indication: RHEUMATOID ARTHRITIS
  4. EUTIROX [Concomitant]
     Indication: THYROID DISORDER
     Dosage: 125 UG, 1X/DAY
     Route: 048
     Dates: start: 2006
  5. HYDROCHLOROTHIAZIDE [Concomitant]
     Indication: CHROMATURIA
     Dosage: 25 MG, 1X/DAY
     Route: 048
     Dates: start: 2008
  6. FLUOXETINE [Concomitant]
     Indication: STRESS
     Dosage: UNK
     Route: 048
     Dates: start: 2008
  7. FLUOXETINE [Concomitant]
     Indication: NERVOUSNESS
  8. ACETAMINOPHEN [Concomitant]
     Indication: BONE PAIN
     Dosage: 500 MG, AS NEEDED
     Route: 048
     Dates: start: 2011
  9. ATORVASTATIN [Concomitant]
     Indication: BLOOD CHOLESTEROL INCREASED
     Dosage: 40 MG, 1X/DAY
     Route: 048
     Dates: start: 2012
  10. LOSARTAN [Concomitant]
     Indication: HYPERTENSION
     Dosage: 50 MG, 4X/DAY
     Route: 048
     Dates: start: 201305

REACTIONS (3)
  - Off label use [Not Recovered/Not Resolved]
  - Myocardial infarction [Recovered/Resolved]
  - Drug ineffective for unapproved indication [Recovered/Resolved]
